FAERS Safety Report 18604431 (Version 1)
Quarter: 2020Q4

REPORT INFORMATION
  Report Type: Spontaneous
  Country: IT (occurrence: IT)
  Receive Date: 20201211
  Receipt Date: 20201211
  Transmission Date: 20210114
  Serious: Yes (Hospitalization, Other)
  Sender: FDA-Public Use
  Company Number: IT-AUROBINDO-AUR-APL-2020-060170

PATIENT
  Age: 15 Year
  Sex: Male

DRUGS (2)
  1. RESILIENT [Suspect]
     Active Substance: LITHIUM SULFATE
     Indication: AFFECTIVE DISORDER
     Dosage: 2 DOSAGE FORM, TOTAL
     Route: 048
     Dates: start: 20190228
  2. OLANZAPINE TABLET [Suspect]
     Active Substance: OLANZAPINE
     Indication: PRODUCT USED FOR UNKNOWN INDICATION
     Dosage: 20 MILLIGRAM, TOTAL
     Route: 048
     Dates: start: 20190228

REACTIONS (8)
  - Asthenia [Recovering/Resolving]
  - Bradyphrenia [Recovering/Resolving]
  - Sinus bradycardia [Recovering/Resolving]
  - Sopor [Recovering/Resolving]
  - Hypokinesia [Recovering/Resolving]
  - Drug abuse [Recovering/Resolving]
  - Expired product administered [Recovering/Resolving]
  - Negativism [Recovering/Resolving]

NARRATIVE: CASE EVENT DATE: 20190228
